FAERS Safety Report 20545404 (Version 1)
Quarter: 2022Q1

REPORT INFORMATION
  Report Type: Spontaneous
  Country: US (occurrence: US)
  Receive Date: 20220303
  Receipt Date: 20220303
  Transmission Date: 20220423
  Serious: No
  Sender: FDA-Public Use
  Company Number: US-ALLERGAN-2141933US

PATIENT
  Sex: Male
  Weight: 109.77 kg

DRUGS (2)
  1. RESTASIS [Suspect]
     Active Substance: CYCLOSPORINE
     Indication: Glaucoma
     Dosage: 4 GTT, QD
  2. ATROPINE SULFATE [Suspect]
     Active Substance: ATROPINE SULFATE
     Indication: Glaucoma
     Dosage: 1 GTT, BID

REACTIONS (1)
  - Off label use [Unknown]
